FAERS Safety Report 10034779 (Version 2)
Quarter: 2014Q1

REPORT INFORMATION
  Report Type: Spontaneous
  Country: MY (occurrence: MY)
  Receive Date: 20140325
  Receipt Date: 20140325
  Transmission Date: 20141002
  Serious: Yes (Hospitalization, Other)
  Sender: FDA-Public Use
  Company Number: MY-PFIZER INC-2014019265

PATIENT
  Age: 42 Year
  Sex: Female

DRUGS (2)
  1. DILANTIN [Suspect]
     Dosage: 100 MG, 3X/DAY
     Route: 048
     Dates: start: 20110315, end: 20110316
  2. BACTRIM [Suspect]
     Indication: RENAL VESSEL DISORDER
     Dosage: 2 DF, 1X/DAY
     Route: 048
     Dates: start: 20110307, end: 20110318

REACTIONS (2)
  - Abnormal behaviour [Unknown]
  - Stevens-Johnson syndrome [Recovered/Resolved]
